FAERS Safety Report 7876085-7 (Version None)
Quarter: 2011Q4

REPORT INFORMATION
  Report Type: 
  Country: None (occurrence: None)
  Receive Date: 20111031
  Receipt Date: 20111017
  Transmission Date: 20120403
  Serious: Yes (Life-Threatening, Hospitalization)
  Sender: FDA-Public Use
  Company Number: US-ROCHE-1002334

PATIENT
  Age: 50 Year
  Sex: Female
  Weight: 77.2 kg

DRUGS (7)
  1. AVASTIN [Suspect]
     Indication: BREAST CANCER
     Dosage: 30-90 MIN ON DAY 1, CYCLE 14
     Route: 042
     Dates: start: 20080820, end: 20081224
  2. PACLITAXEL [Suspect]
     Indication: BREAST CANCER
     Dosage: OVER 1 HR ON DAYS1,8,15 CYCLE: 21
     Route: 042
     Dates: end: 20090107
  3. FILGRASTIM [Suspect]
     Indication: BREAST CANCER
     Dosage: 5 MCG/KG SQ ON DAY 2-11
     Dates: start: 20080820
  4. AVASTIN [Suspect]
     Dosage: OVER 30-90MIN ON DAY, CYCLE 21
     Route: 042
  5. CYCLOPHOSPHAMIDE [Suspect]
     Indication: BREAST CANCER
     Dosage: OVER 20-30 MIN ON DAY 1, CYCLE 14
     Route: 042
     Dates: start: 20080820, end: 20081008
  6. NEULASTA [Suspect]
     Indication: BREAST CANCER
     Dosage: SQ ON DAY 2
     Dates: start: 20080820, end: 20081009
  7. DOXORUBICIN HCL [Suspect]
     Indication: BREAST CANCER
     Dosage: IVP ON DAY 1, CYCLE 14
     Dates: start: 20080820, end: 20081008

REACTIONS (3)
  - PLATELET COUNT DECREASED [None]
  - ACUTE MYELOID LEUKAEMIA [None]
  - ANAEMIA [None]
